FAERS Safety Report 10410985 (Version 2)
Quarter: 2014Q3

REPORT INFORMATION
  Report Type: Spontaneous
  Country: US (occurrence: US)
  Receive Date: 20140826
  Receipt Date: 20140826
  Transmission Date: 20150326
  Serious: Yes (Hospitalization)
  Sender: FDA-Public Use
  Company Number: US-009507513-2009SP033197

PATIENT
  Sex: Female
  Weight: 86.18 kg

DRUGS (1)
  1. NUVARING [Suspect]
     Active Substance: ETHINYL ESTRADIOL\ETONOGESTREL
     Indication: CONTRACEPTION
     Dates: start: 20070915, end: 200710

REACTIONS (2)
  - Deep vein thrombosis [Unknown]
  - Joint injury [Unknown]

NARRATIVE: CASE EVENT DATE: 20071008
